FAERS Safety Report 23433350 (Version 2)
Quarter: 2024Q1

REPORT INFORMATION
  Report Type: Report from Study
  Country: US (occurrence: US)
  Receive Date: 20240123
  Receipt Date: 20240304
  Transmission Date: 20240409
  Serious: Yes (Death, Other)
  Sender: FDA-Public Use
  Company Number: US-OTSUKA-2023_034113

PATIENT
  Age: 65 Year
  Sex: Male
  Weight: 113.38 kg

DRUGS (2)
  1. CEDAZURIDINE\DECITABINE [Suspect]
     Active Substance: CEDAZURIDINE\DECITABINE
     Indication: Myelodysplastic syndrome
     Dosage: 1 DF (35 MG DECITABINE + 100 MG CEDAZURIDINE) DAILY ON DAYS 1-3 OF EACH 28 DAY CYCLE
     Route: 048
     Dates: start: 202210
  2. ARANESP [Concomitant]
     Active Substance: DARBEPOETIN ALFA
     Indication: Erythropoietin deficiency anaemia
     Dosage: 300 MCG/0.6ML (ALBUMIN FREE) SOLUTION PREFILLED SYRINGE, EVERY TWO WEEKS
     Route: 058

REACTIONS (4)
  - Death [Fatal]
  - White blood cell count increased [Unknown]
  - Blood uric acid increased [Unknown]
  - Haemoglobin decreased [Unknown]

NARRATIVE: CASE EVENT DATE: 20230615
